FAERS Safety Report 16118099 (Version 2)
Quarter: 2019Q2

REPORT INFORMATION
  Report Type: Report from Study
  Country: JP (occurrence: JP)
  Receive Date: 20190326
  Receipt Date: 20190405
  Transmission Date: 20190711
  Serious: Yes (Other)
  Sender: FDA-Public Use
  Company Number: JP-BAYER-2019-059090

PATIENT

DRUGS (1)
  1. BLINDED ACETYLSALICYLIC ACID (CARDIO) [Suspect]
     Active Substance: ASPIRIN
     Indication: ADENOMATOUS POLYPOSIS COLI

REACTIONS (2)
  - Papillary thyroid cancer [Recovering/Resolving]
  - Metastases to lung [Recovering/Resolving]
